FAERS Safety Report 8819709 (Version 1)
Quarter: 2012Q4

REPORT INFORMATION
  Report Type: Report from Study
  Country: CA (occurrence: CA)
  Receive Date: 20121001
  Receipt Date: 20121001
  Transmission Date: 20130627
  Serious: Yes (Other)
  Sender: FDA-Public Use
  Company Number: CA-JNJFOC-20120908740

PATIENT
  Sex: Female
  Weight: 80.4 kg

DRUGS (6)
  1. REMICADE [Suspect]
     Indication: CROHN^S DISEASE
     Route: 042
     Dates: start: 20111130
  2. TYLENOL [Concomitant]
     Indication: PREMEDICATION
     Route: 048
  3. CODEINE CONTIN [Concomitant]
     Route: 065
  4. CIPRALEX [Concomitant]
     Route: 065
  5. METHOTREXATE [Concomitant]
     Route: 048
  6. BIRTH CONTROL PILLS [Concomitant]
     Route: 065

REACTIONS (2)
  - Urinary tract infection [Unknown]
  - Smear cervix abnormal [Unknown]
